FAERS Safety Report 24255901 (Version 1)
Quarter: 2024Q3

REPORT INFORMATION
  Report Type: Spontaneous
  Country: FR (occurrence: FR)
  Receive Date: 20240827
  Receipt Date: 20240827
  Transmission Date: 20241016
  Serious: Yes (Other)
  Sender: PFIZER
  Company Number: FR-PFIZER INC-2018280974

PATIENT
  Age: 63 Year
  Sex: Female

DRUGS (4)
  1. DOCETAXEL [Suspect]
     Active Substance: DOCETAXEL\DOCETAXEL ANHYDROUS
     Indication: Breast cancer female
     Dosage: 100 MG/M2, CYCLIC, (4 CYCLES, EVERY 21 DAYS)
  2. FLUOROURACIL [Concomitant]
     Active Substance: FLUOROURACIL
     Indication: Breast cancer female
     Dosage: 500 MG/M2, CYCLIC (4 CYCLES, EVERY 21 DAYS)
  3. EPIRUBICIN [Concomitant]
     Active Substance: EPIRUBICIN
     Indication: Breast cancer female
     Dosage: 100 MG/M2, CYCLIC (4 CYCLES, EVERY 21 DAYS)
  4. CYCLOPHOSPHAMIDE [Concomitant]
     Active Substance: CYCLOPHOSPHAMIDE
     Indication: Breast cancer female
     Dosage: 500 MG/M2, CYCLIC, (4 CYCLES, EVERY 21 DAYS)

REACTIONS (1)
  - Acute generalised exanthematous pustulosis [Recovered/Resolved]
